FAERS Safety Report 4855269-6 (Version None)
Quarter: 2005Q4

REPORT INFORMATION
  Report Type: 
  Country: None (occurrence: None)
  Receive Date: 20051215
  Receipt Date: 20050112
  Transmission Date: 20060501
  Serious: Yes (Hospitalization)
  Sender: FDA-Public Use
  Company Number: US-MERCK-0501USA02228

PATIENT
  Age: 48 Year
  Sex: Male
  Weight: 91 kg

DRUGS (14)
  1. VIOXX [Suspect]
     Indication: ARTHRITIS
     Route: 048
     Dates: start: 19990101, end: 20040930
  2. ASPIRIN [Concomitant]
     Route: 065
  3. LANTUS [Concomitant]
     Route: 065
  4. LOPID [Concomitant]
     Route: 065
  5. ZOLOFT [Concomitant]
     Route: 065
  6. METHOTREXATE [Concomitant]
     Route: 065
  7. AVANDIA [Concomitant]
     Route: 065
  8. ZYPREXA [Concomitant]
     Route: 065
  9. NIASPAN [Concomitant]
     Route: 065
  10. ZOCOR [Concomitant]
     Route: 065
  11. MONOPRIL [Concomitant]
     Route: 065
  12. STARLIX [Concomitant]
     Route: 065
  13. XANAX [Concomitant]
     Route: 065
  14. SELEGILINE [Concomitant]
     Route: 065

REACTIONS (19)
  - ABDOMINAL PAIN [None]
  - ACUTE MYOCARDIAL INFARCTION [None]
  - ALANINE AMINOTRANSFERASE INCREASED [None]
  - ALCOHOL WITHDRAWAL SYNDROME [None]
  - ASPARTATE AMINOTRANSFERASE INCREASED [None]
  - ASTHENIA [None]
  - BLOOD PRESSURE INCREASED [None]
  - CELLULITIS [None]
  - CORONARY ARTERY DISEASE [None]
  - DIASTOLIC DYSFUNCTION [None]
  - GASTROOESOPHAGEAL REFLUX DISEASE [None]
  - HEPATIC ENZYME INCREASED [None]
  - HYPONATRAEMIA [None]
  - INGROWING NAIL [None]
  - IRON DEFICIENCY ANAEMIA [None]
  - MUSCLE STRAIN [None]
  - MUSCULOSKELETAL DISCOMFORT [None]
  - PARAESTHESIA [None]
  - RHEUMATOID ARTHRITIS [None]
